FAERS Safety Report 20630925 (Version 2)
Quarter: 2022Q2

REPORT INFORMATION
  Report Type: Report from Study
  Country: CA (occurrence: CA)
  Receive Date: 20220324
  Receipt Date: 20220405
  Transmission Date: 20220721
  Serious: Yes (Other)
  Sender: FDA-Public Use
  Company Number: CA-ABBVIE-22K-028-4326963-00

PATIENT
  Age: 64 Year
  Sex: Male

DRUGS (2)
  1. HUMIRA [Suspect]
     Active Substance: ADALIMUMAB
     Indication: Rheumatoid arthritis
     Route: 058
     Dates: start: 20180713, end: 2022
  2. ELIQUIS [Concomitant]
     Active Substance: APIXABAN
     Indication: Product used for unknown indication
     Route: 065

REACTIONS (12)
  - Cardiovascular disorder [Unknown]
  - Cardiac ventricular thrombosis [Unknown]
  - Gallbladder operation [Unknown]
  - Pulmonary valve incompetence [Unknown]
  - Mast cell activation syndrome [Unknown]
  - Akinesia [Unknown]
  - Hypokinesia [Unknown]
  - Diastolic dysfunction [Unknown]
  - Mitral valve incompetence [Unknown]
  - Tricuspid valve incompetence [Unknown]
  - Aortic arteriosclerosis [Unknown]
  - Unevaluable event [Unknown]

NARRATIVE: CASE EVENT DATE: 20220101
